FAERS Safety Report 10170016 (Version 1)
Quarter: 2014Q2

REPORT INFORMATION
  Report Type: Report from Study
  Country: US (occurrence: US)
  Receive Date: 20140513
  Receipt Date: 20140513
  Transmission Date: 20141212
  Serious: Yes (Hospitalization)
  Sender: FDA-Public Use
  Company Number: PHHY2014US054865

PATIENT
  Age: 72 Year
  Sex: Female

DRUGS (3)
  1. CICLOSPORIN [Suspect]
     Indication: RENAL TRANSPLANT
     Dosage: 150 MG, QD
     Route: 048
     Dates: start: 20100707
  2. MYCOPHENOLATE MOFETIL [Suspect]
     Indication: RENAL TRANSPLANT
     Dosage: 1000 MG, BID
     Dates: start: 20100707
  3. PREDNISOLONE [Suspect]
     Indication: RENAL TRANSPLANT
     Dosage: 5 MG, PER DAY
     Dates: start: 20100730

REACTIONS (7)
  - Renal failure acute [Unknown]
  - Sepsis [Recovered/Resolved]
  - Chills [Unknown]
  - Night sweats [Unknown]
  - Pyrexia [Unknown]
  - Hepatic cyst infection [Recovered/Resolved]
  - Abdominal pain upper [Unknown]
